FAERS Safety Report 7097569-8 (Version None)
Quarter: 2010Q4

REPORT INFORMATION
  Report Type: 
  Country: None (occurrence: None)
  Receive Date: 20101111
  Receipt Date: 20101029
  Transmission Date: 20110411
  Serious: Yes (Other)
  Sender: FDA-Public Use
  Company Number: GB-MYLANLABS-2010S1019980

PATIENT
  Sex: Male

DRUGS (2)
  1. WARFARIN [Suspect]
     Indication: PRODUCT USED FOR UNKNOWN INDICATION
  2. LEUPROLIDE ACETATE [Interacting]
     Indication: PRODUCT USED FOR UNKNOWN INDICATION
     Route: 042

REACTIONS (2)
  - DRUG INTERACTION [None]
  - INTERNATIONAL NORMALISED RATIO DECREASED [None]
